FAERS Safety Report 8845727 (Version 1)
Quarter: 2012Q4

REPORT INFORMATION
  Report Type: 
  Country: US (occurrence: US)
  Receive Date: 20121017
  Receipt Date: 20121017
  Transmission Date: 20130627
  Serious: No
  Sender: FDA-Public Use
  Company Number: US-ASTRAZENECA-2012SE72516

PATIENT
  Age: 65 Year
  Sex: Female

DRUGS (5)
  1. SEROQUEL XR [Suspect]
     Indication: MAJOR DEPRESSION
     Route: 048
  2. PAROXETINE [Suspect]
     Route: 048
     Dates: end: 20120917
  3. PAROXETINE [Suspect]
     Route: 048
     Dates: start: 20120917
  4. ALPRAZOLAM [Concomitant]
  5. CLONAZEPAM [Concomitant]

REACTIONS (2)
  - Dysgraphia [Unknown]
  - Tremor [Not Recovered/Not Resolved]
